FAERS Safety Report 9167587 (Version 1)
Quarter: 2020Q3

REPORT INFORMATION
  Report Type: Spontaneous
  Country: DK (occurrence: DK)
  Receive Date: 20130318
  Receipt Date: 20130318
  Transmission Date: 20201104
  Serious: Yes (Other)
  Sender: FDA-Public Use
  Company Number: DK-JNJFOC-20130303375

PATIENT

DRUGS (3)
  1. KETOCONAZOLE. [Suspect]
     Active Substance: KETOCONAZOLE
     Indication: PRODUCT USED FOR UNKNOWN INDICATION
     Dosage: FOR 3 DAYS (DAYS 8?10)
     Route: 048
  2. CEDIRANIB. [Suspect]
     Active Substance: CEDIRANIB
     Indication: PRODUCT USED FOR UNKNOWN INDICATION
     Dosage: FOR 3 DAYS
     Route: 048
  3. CEDIRANIB. [Suspect]
     Active Substance: CEDIRANIB
     Indication: PRODUCT USED FOR UNKNOWN INDICATION
     Dosage: FOR 7 DAYS
     Route: 048

REACTIONS (6)
  - Fatigue [Unknown]
  - Adverse event [Unknown]
  - Subileus [Unknown]
  - Hypertension [Unknown]
  - Alanine aminotransferase increased [Unknown]
  - Diarrhoea [Unknown]
